FAERS Safety Report 9243618 (Version 4)
Quarter: 2013Q4

REPORT INFORMATION
  Report Type: Spontaneous
  Country: IE (occurrence: IE)
  Receive Date: 20130422
  Receipt Date: 20131014
  Transmission Date: 20140711
  Serious: Yes (Other)
  Sender: FDA-Public Use
  Company Number: IE-AMGEN-IRLSP2013027370

PATIENT
  Age: 41 Year
  Sex: Male

DRUGS (4)
  1. ENBREL [Suspect]
     Indication: PRODUCT USED FOR UNKNOWN INDICATION
     Dosage: 50 MG, WEEKLY
     Route: 058
     Dates: start: 2006, end: 201302
  2. METHOTREXATE SODIUM [Suspect]
     Indication: PRODUCT USED FOR UNKNOWN INDICATION
     Dosage: UNK
     Route: 065
     Dates: start: 2005, end: 2007
  3. METHOTREXATE SODIUM [Suspect]
     Dosage: UNK
     Route: 065
     Dates: start: 201009, end: 20110404
  4. NEROFEN [Concomitant]
     Dosage: UNK UNK, AS NECESSARY

REACTIONS (1)
  - Basal cell carcinoma [Recovered/Resolved]
